FAERS Safety Report 9504220 (Version 1)
Quarter: 2013Q3

REPORT INFORMATION
  Report Type: Report from Study
  Country: US (occurrence: US)
  Receive Date: 20130906
  Receipt Date: 20130906
  Transmission Date: 20140515
  Serious: Yes (Hospitalization)
  Sender: FDA-Public Use
  Company Number: US-GLAXOSMITHKLINE-A1040301A

PATIENT
  Sex: Male

DRUGS (2)
  1. ALBUTEROL [Suspect]
     Indication: CHRONIC OBSTRUCTIVE PULMONARY DISEASE
     Route: 065
  2. UNSPECIFIED MEDICATIONS [Concomitant]

REACTIONS (14)
  - Cardiac operation [Unknown]
  - Spinal corpectomy [Unknown]
  - Catheterisation cardiac [Unknown]
  - Device occlusion [Unknown]
  - Pain in extremity [Unknown]
  - Arthritis [Unknown]
  - Hypoaesthesia [Unknown]
  - Movement disorder [Unknown]
  - Pain [Unknown]
  - Ill-defined disorder [Unknown]
  - Chest pain [Unknown]
  - Back pain [Unknown]
  - Back crushing [Unknown]
  - Surgery [Unknown]
